FAERS Safety Report 19248759 (Version 2)
Quarter: 2021Q3

REPORT INFORMATION
  Report Type: Spontaneous
  Country: US (occurrence: US)
  Receive Date: 20210512
  Receipt Date: 20210708
  Transmission Date: 20211014
  Serious: No
  Sender: FDA-Public Use
  Company Number: US-ASTRAZENECA-2021A368320

PATIENT
  Age: 647 Month
  Sex: Female
  Weight: 43.5 kg

DRUGS (9)
  1. MULTIVITAMIN [Concomitant]
     Active Substance: VITAMINS
  2. CLONAZAPAM [Concomitant]
     Active Substance: CLONAZEPAM
  3. LYNPARZA [Suspect]
     Active Substance: OLAPARIB
     Indication: OVARIAN CANCER
     Route: 048
     Dates: start: 202005
  4. VITAMIN B [Concomitant]
     Active Substance: VITAMIN B
     Dates: end: 20210426
  5. CITALOPRAM [Concomitant]
     Active Substance: CITALOPRAM HYDROBROMIDE
     Indication: DEPRESSION
     Dosage: 20,DAILY
     Dates: start: 201911
  6. VITAMIN E [Concomitant]
     Active Substance: .ALPHA.-TOCOPHEROL
     Dates: end: 20210426
  7. CITALOPRAM [Concomitant]
     Active Substance: CITALOPRAM HYDROBROMIDE
     Indication: ANXIETY
     Dosage: 20,DAILY
     Dates: start: 201911
  8. CALCIUM AND D3 [Concomitant]
  9. VITAMIN D [Concomitant]
     Active Substance: VITAMIN D NOS
     Dates: end: 20210426

REACTIONS (1)
  - Alopecia [Not Recovered/Not Resolved]

NARRATIVE: CASE EVENT DATE: 20210406
